FAERS Safety Report 15710109 (Version 1)
Quarter: 2018Q4

REPORT INFORMATION
  Report Type: Report from Study
  Country: None (occurrence: US)
  Receive Date: 20181211
  Receipt Date: 20181211
  Transmission Date: 20190205
  Serious: Yes (Other)
  Sender: FDA-Public Use
  Company Number: US-ABBVIE-18S-163-2582308-00

PATIENT
  Age: 86 Year
  Sex: Male

DRUGS (1)
  1. CREON [Suspect]
     Active Substance: PANCRELIPASE AMYLASE\PANCRELIPASE LIPASE\PANCRELIPASE PROTEASE
     Indication: PRODUCT USED FOR UNKNOWN INDICATION
     Route: 048

REACTIONS (37)
  - Posterior capsule opacification [Unknown]
  - Respiratory disorder [Unknown]
  - Endocrine disorder [Unknown]
  - Nervousness [Unknown]
  - Carpal tunnel syndrome [Unknown]
  - Musculoskeletal disorder [Unknown]
  - Glucose tolerance impaired [Unknown]
  - Chronic obstructive pulmonary disease [Unknown]
  - Pancreatic cyst [Unknown]
  - Dermatochalasis [Unknown]
  - Pain [Unknown]
  - Dry eye [Unknown]
  - Generalised oedema [Unknown]
  - Soft tissue mass [Unknown]
  - Refraction disorder [Unknown]
  - Crohn^s disease [Unknown]
  - Intraocular lens implant [Unknown]
  - Epiploic appendagitis [Unknown]
  - Gastrooesophageal reflux disease [Unknown]
  - Neuropathy peripheral [Unknown]
  - Osteoarthritis [Unknown]
  - Neurofibroma [Unknown]
  - Skin disorder [Unknown]
  - Hiatus hernia [Unknown]
  - Pancreatitis chronic [Unknown]
  - Urogenital disorder [Unknown]
  - Benign prostatic hyperplasia [Unknown]
  - Conjunctivochalasis [Unknown]
  - Urinary tract obstruction [Unknown]
  - Essential hypertension [Unknown]
  - Type 2 diabetes mellitus [Unknown]
  - Gout [Unknown]
  - Renal cyst [Unknown]
  - Vitamin D deficiency [Unknown]
  - Auditory disorder [Unknown]
  - Disease complication [Unknown]
  - Gastrointestinal disorder [Unknown]

NARRATIVE: CASE EVENT DATE: 20181023
